FAERS Safety Report 8016640-7 (Version None)
Quarter: 2011Q4

REPORT INFORMATION
  Report Type: 
  Country: None (occurrence: None)
  Receive Date: 20111231
  Receipt Date: 20111209
  Transmission Date: 20120403
  Serious: No
  Sender: FDA-Public Use
  Company Number: US-ROXANE LABORATORIES, INC.-2011-RO-01529RO

PATIENT
  Sex: Female

DRUGS (4)
  1. CYCLOPHOSPHAMIDE [Suspect]
     Indication: BREAST CANCER STAGE IV
     Dosage: 50 MG
     Route: 048
     Dates: start: 20111018
  2. AMBIEN [Concomitant]
  3. PERCOCET [Concomitant]
  4. VITAMIN D [Concomitant]

REACTIONS (4)
  - VOMITING [None]
  - NAUSEA [None]
  - TABLET PHYSICAL ISSUE [None]
  - RETCHING [None]
